FAERS Safety Report 9448616 (Version 2)
Quarter: 2013Q4

REPORT INFORMATION
  Report Type: Report from Study
  Country: JP (occurrence: JP)
  Receive Date: 20130808
  Receipt Date: 20131223
  Transmission Date: 20140711
  Serious: Yes (Hospitalization, Other)
  Sender: FDA-Public Use
  Company Number: PHHY2012JP090366

PATIENT
  Age: 75 Year
  Sex: Male

DRUGS (11)
  1. AMN107 [Suspect]
     Indication: CHRONIC MYELOID LEUKAEMIA
     Dosage: 600 MG, DAILY
     Route: 048
     Dates: start: 20120220, end: 20120221
  2. AMN107 [Suspect]
     Dosage: 300 MG, DAILY
     Route: 048
     Dates: start: 20120227, end: 20120401
  3. AMN107 [Suspect]
     Dosage: 450 MG, DAILY
     Route: 048
     Dates: start: 20120402, end: 20120415
  4. AMN107 [Suspect]
     Dosage: 600 MG, DAILY
     Route: 048
     Dates: start: 20120416, end: 20120927
  5. BASEN [Concomitant]
     Dosage: 0.9 MG, UNK
     Route: 048
     Dates: start: 2007, end: 20120419
  6. HUMALOG [Concomitant]
     Route: 058
     Dates: start: 20120221, end: 20120222
  7. VALTREX [Concomitant]
     Dosage: 1000 MG, UNK
     Dates: start: 20120219, end: 20120227
  8. PREDONINE [Concomitant]
     Dosage: 30 MG, UNK
     Route: 048
     Dates: start: 20120220
  9. PREDONINE [Concomitant]
     Dosage: 20 MG, UNK
     Route: 048
  10. PREDONINE [Concomitant]
     Dosage: 10 MG, UNK
     Route: 048
  11. PREDONINE [Concomitant]
     Dosage: 5 MG, UNK
     Route: 048
     Dates: end: 20120318

REACTIONS (10)
  - Pleural effusion [Recovered/Resolved]
  - Pericardial effusion [Recovered/Resolved]
  - Fibrin degradation products increased [Unknown]
  - Fibrin D dimer increased [Unknown]
  - Renal impairment [Recovered/Resolved]
  - Lipase increased [Recovered/Resolved]
  - Amylase increased [Recovered/Resolved]
  - Blood bilirubin increased [Recovered/Resolved]
  - Rash [Recovered/Resolved]
  - Weight decreased [Unknown]
